FAERS Safety Report 11820033 (Version 1)
Quarter: 2015Q4

REPORT INFORMATION
  Report Type: Spontaneous
  Country: GB (occurrence: GB)
  Receive Date: 20151210
  Receipt Date: 20151210
  Transmission Date: 20160305
  Serious: Yes (Hospitalization)
  Sender: FDA-Public Use
  Company Number: GB-ACCORD-036066

PATIENT
  Age: 69 Year
  Sex: Female
  Weight: 62 kg

DRUGS (10)
  1. LANSOPRAZOLE. [Concomitant]
     Active Substance: LANSOPRAZOLE
  2. VITAMINS NOS [Concomitant]
     Active Substance: VITAMINS
  3. ALENDRONATE SODIUM/ALENDRONIC ACID [Concomitant]
  4. TERBUTALINE [Concomitant]
     Active Substance: TERBUTALINE
  5. PARACETAMOL [Concomitant]
     Active Substance: ACETAMINOPHEN
  6. DONEPEZIL/DONEPEZIL HYDROCHLORIDE [Suspect]
     Active Substance: DONEPEZIL HYDROCHLORIDE
     Indication: DEMENTIA
     Route: 048
     Dates: start: 20151001, end: 20151029
  7. CALCEOS [Concomitant]
     Active Substance: CALCIUM CARBONATE\CHOLECALCIFEROL
  8. FOLATE SODIUM/FOLIC ACID [Concomitant]
  9. OLANZAPINE. [Concomitant]
     Active Substance: OLANZAPINE
  10. THIAMINE. [Concomitant]
     Active Substance: THIAMINE

REACTIONS (4)
  - Hallucination [Not Recovered/Not Resolved]
  - Delusion [Unknown]
  - Pressure of speech [Not Recovered/Not Resolved]
  - Social avoidant behaviour [Unknown]

NARRATIVE: CASE EVENT DATE: 20151026
